FAERS Safety Report 20302844 (Version 1)
Quarter: 2022Q1

REPORT INFORMATION
  Report Type: Spontaneous
  Country: US (occurrence: US)
  Receive Date: 20220106
  Receipt Date: 20220106
  Transmission Date: 20220423
  Serious: Yes (Hospitalization, Other)
  Sender: FDA-Public Use
  Company Number: US-LUPIN PHARMACEUTICALS INC.-2021-26333

PATIENT
  Age: 71 Year
  Sex: Male

DRUGS (9)
  1. METRONIDAZOLE [Suspect]
     Active Substance: METRONIDAZOLE
     Indication: Evidence based treatment
     Dosage: 500 MILLIGRAM, QD
     Route: 065
  2. METRONIDAZOLE [Suspect]
     Active Substance: METRONIDAZOLE
     Indication: Staphylococcal bacteraemia
  3. CEFAZOLIN [Suspect]
     Active Substance: CEFAZOLIN
     Indication: Staphylococcal bacteraemia
     Dosage: UNK
     Route: 042
  4. CEFEPIME [Suspect]
     Active Substance: CEFEPIME HYDROCHLORIDE
     Indication: Evidence based treatment
     Dosage: 1 GRAM, QID
     Route: 065
  5. CEFEPIME [Suspect]
     Active Substance: CEFEPIME HYDROCHLORIDE
     Indication: Staphylococcal bacteraemia
  6. VANCOMYCIN [Concomitant]
     Active Substance: VANCOMYCIN
     Indication: Evidence based treatment
     Dosage: 15 MILLIGRAM/KILOGRAM, QD
     Route: 065
  7. VANCOMYCIN [Concomitant]
     Active Substance: VANCOMYCIN
     Indication: Staphylococcal bacteraemia
  8. ASPIRIN [Concomitant]
     Active Substance: ASPIRIN
     Indication: Product used for unknown indication
     Dosage: UNK
     Route: 065
  9. APIXABAN [Concomitant]
     Active Substance: APIXABAN
     Indication: Product used for unknown indication
     Dosage: UNK
     Route: 065

REACTIONS (2)
  - Tubulointerstitial nephritis [Unknown]
  - Drug ineffective [Unknown]
